FAERS Safety Report 4916734-6 (Version None)
Quarter: 2006Q1

REPORT INFORMATION
  Report Type: 
  Country: None (occurrence: None)
  Receive Date: 20060220
  Receipt Date: 20060213
  Transmission Date: 20060701
  Serious: Yes (Life-Threatening, Hospitalization)
  Sender: FDA-Public Use
  Company Number: PHRM2006FR00763

PATIENT
  Age: 38 Day
  Sex: Male
  Weight: 1.1 kg

DRUGS (4)
  1. TROPICAMIDE 0.5% FAURE (NVO) [Suspect]
     Indication: MYDRIASIS
     Dosage: 1 DROP EVERY 20 MN BETWEEN 4 PM AND 6 PM
     Dates: start: 20060103, end: 20060103
  2. PROCAINE HCL [Concomitant]
     Indication: FUNDOSCOPY
     Dates: start: 20060103, end: 20060103
  3. ATROPIN (NVO) [Suspect]
     Indication: MYDRIASIS
     Dosage: 1 DROP IN BOTH AT 4 AND 5 PM
     Dates: start: 20060103, end: 20060103
  4. PHENYLEPHRINE HYDROCHLORIDE (NVO) [Suspect]
     Indication: MYDRIASIS
     Dosage: 1 DROP IN BOTH EYES
     Dates: start: 20060103, end: 20060103

REACTIONS (6)
  - ABDOMINAL DISTENSION [None]
  - CONVULSION [None]
  - INTUBATION [None]
  - OVERDOSE [None]
  - OXYGEN SATURATION DECREASED [None]
  - TACHYCARDIA [None]
